FAERS Safety Report 6752043-0 (Version None)
Quarter: 2010Q2

REPORT INFORMATION
  Report Type: 
  Country: None (occurrence: None)
  Receive Date: 20100526
  Receipt Date: 20100317
  Transmission Date: 20101027
  Serious: No
  Sender: FDA-Public Use
  Company Number: 305876

PATIENT
  Age: 63 Year
  Sex: Female

DRUGS (2)
  1. VICTOZA [Suspect]
     Indication: TYPE 2 DIABETES MELLITUS
     Dosage: 0.3 MG, FIRST 2 DAYS, SUBCUTANEOUS ; 0.6 MG
     Route: 058
  2. METFORMIN HCL [Concomitant]

REACTIONS (2)
  - CHEST PAIN [None]
  - NAUSEA [None]
